FAERS Safety Report 12652611 (Version 4)
Quarter: 2017Q3

REPORT INFORMATION
  Report Type: Spontaneous
  Country: DE (occurrence: DE)
  Receive Date: 20160815
  Receipt Date: 20170714
  Transmission Date: 20171127
  Serious: Yes (Hospitalization, Other)
  Sender: FDA-Public Use
  Company Number: DE-BAXALTA-2016BLT005718

PATIENT
  Age: 50 Year
  Sex: Female

DRUGS (1)
  1. OBIZUR [Suspect]
     Active Substance: ANTIHEMOPHILIC FACTOR PORCINE, B-DOMAIN TRUNCATED RECOMBINANT
     Indication: ACQUIRED HAEMOPHILIA
     Dosage: 100 IU/KG, UNK
     Route: 065

REACTIONS (3)
  - Drug effect decreased [Unknown]
  - Haemorrhage [Unknown]
  - Inhibiting antibodies [Unknown]
